FAERS Safety Report 15850914 (Version 2)
Quarter: 2019Q1

REPORT INFORMATION
  Report Type: Spontaneous
  Country: GB (occurrence: GB)
  Receive Date: 20190121
  Receipt Date: 20190208
  Transmission Date: 20190417
  Serious: Yes (Other)
  Sender: FDA-Public Use
  Company Number: GB-009507513-1901GBR004952

PATIENT
  Sex: Female

DRUGS (1)
  1. NEXPLANON [Suspect]
     Active Substance: ETONOGESTREL
     Dosage: 1 IMPLANT (68 MG)
     Route: 059

REACTIONS (6)
  - Injury [Unknown]
  - Mood altered [Not Recovered/Not Resolved]
  - Device embolisation [Not Recovered/Not Resolved]
  - Device dislocation [Not Recovered/Not Resolved]
  - Surgery [Recovered/Resolved]
  - Complication of device removal [Not Recovered/Not Resolved]

NARRATIVE: CASE EVENT DATE: 20181228
